FAERS Safety Report 9206346 (Version 3)
Quarter: 2013Q2

REPORT INFORMATION
  Report Type: Spontaneous
  Country: US (occurrence: None)
  Receive Date: 20130401
  Receipt Date: 20130516
  Transmission Date: 20140414
  Serious: Yes (Hospitalization)
  Sender: FDA-Public Use
  Company Number: ACO_34875_2013

PATIENT
  Sex: 0

DRUGS (2)
  1. AMPYRA [Suspect]
     Indication: GAIT DISTURBANCE
  2. BETASERON (INTERFERON BETA-1B) [Concomitant]

REACTIONS (1)
  - Convulsion [None]
